FAERS Safety Report 7070594-9 (Version None)
Quarter: 2010Q4

REPORT INFORMATION
  Report Type: 
  Country: None (occurrence: None)
  Receive Date: 20101029
  Receipt Date: 20101022
  Transmission Date: 20110411
  Serious: Yes (Other)
  Sender: FDA-Public Use
  Company Number: FR-PFIZER INC-2010134421

PATIENT
  Age: 81 Year
  Sex: Female

DRUGS (9)
  1. TAHOR [Suspect]
     Dosage: 80 MG, UNK
     Dates: end: 20101021
  2. CORENITEC [Concomitant]
     Dosage: UNK
  3. LERCANIDIPINE [Concomitant]
     Dosage: 10, 1 DF, 1X/DAY
  4. SECTRAL [Concomitant]
     Dosage: UNK
  5. KARDEGIC [Concomitant]
     Dosage: UNK
  6. ALLOPURINOL [Concomitant]
     Dosage: UNK
  7. EZETROL [Concomitant]
     Dosage: 1 TABLET, UNK
  8. PNEUMOREL [Concomitant]
     Dosage: UNK
  9. ATROVENT [Concomitant]
     Dosage: UNK

REACTIONS (6)
  - ALANINE AMINOTRANSFERASE INCREASED [None]
  - BLOOD CREATINE PHOSPHOKINASE INCREASED [None]
  - HYPERTENSION [None]
  - MUSCLE SPASMS [None]
  - MYALGIA [None]
  - TRANSAMINASES INCREASED [None]
